FAERS Safety Report 11074296 (Version 1)
Quarter: 2015Q2

REPORT INFORMATION
  Report Type: Spontaneous
  Country: US (occurrence: US)
  Receive Date: 20150429
  Receipt Date: 20150429
  Transmission Date: 20150821
  Serious: No
  Sender: FDA-Public Use
  Company Number: US-TEVA-480820USA

PATIENT
  Sex: Male

DRUGS (3)
  1. TAMSULOSIN [Suspect]
     Active Substance: TAMSULOSIN
     Dates: start: 201404
  2. TAMSULOSIN [Suspect]
     Active Substance: TAMSULOSIN
     Dates: start: 201404
  3. TAMSULOSIN [Suspect]
     Active Substance: TAMSULOSIN
     Dates: start: 201403

REACTIONS (1)
  - Abdominal pain upper [Not Recovered/Not Resolved]
